FAERS Safety Report 9339626 (Version 1)
Quarter: 2013Q2

REPORT INFORMATION
  Report Type: Report from Study
  Country: US (occurrence: US)
  Receive Date: 20130610
  Receipt Date: 20130610
  Transmission Date: 20140414
  Serious: No
  Sender: FDA-Public Use
  Company Number: PHEH2013US012204

PATIENT
  Age: 56 Year
  Sex: Female
  Weight: 66.67 kg

DRUGS (4)
  1. TASIGNA [Suspect]
     Dosage: 2 DF, BID
     Route: 048
  2. ONDANSETRON [Concomitant]
     Dosage: 24 MG, UNK
  3. LASTACAFT [Concomitant]
     Dosage: 0.25 UNK, UNK
  4. MULTI-VIT [Concomitant]

REACTIONS (1)
  - Nausea [Recovering/Resolving]
